FAERS Safety Report 23737358 (Version 2)
Quarter: 2024Q2

REPORT INFORMATION
  Report Type: Spontaneous
  Country: US (occurrence: US)
  Receive Date: 20240412
  Receipt Date: 20240426
  Transmission Date: 20240716
  Serious: Yes (Other)
  Sender: FDA-Public Use
  Company Number: US-COOPERSURGICAL, INC.-2024CPS000818

PATIENT
  Age: 30 Year
  Sex: Female
  Weight: 102.04 kg

DRUGS (2)
  1. PARAGARD T 380A [Suspect]
     Active Substance: COPPER
     Indication: Contraception
     Dosage: UNK
     Route: 065
     Dates: start: 20221017
  2. ALLEGRA [Concomitant]
     Active Substance: FEXOFENADINE HYDROCHLORIDE

REACTIONS (13)
  - Abortion spontaneous [Recovered/Resolved]
  - Device toxicity [Recovered/Resolved]
  - Food allergy [Not Recovered/Not Resolved]
  - Fatigue [Recovering/Resolving]
  - Alopecia [Not Recovered/Not Resolved]
  - Weight decreased [Recovered/Resolved]
  - Dry skin [Not Recovered/Not Resolved]
  - Blood iron decreased [Unknown]
  - Hormone level abnormal [Unknown]
  - Contusion [Unknown]
  - Abdominal pain [Recovered/Resolved]
  - Dyspareunia [Recovered/Resolved]
  - Device dislocation [Unknown]

NARRATIVE: CASE EVENT DATE: 20230101
